FAERS Safety Report 13261556 (Version 2)
Quarter: 2017Q1

REPORT INFORMATION
  Report Type: Report from Study
  Country: US (occurrence: US)
  Receive Date: 20170222
  Receipt Date: 20170228
  Transmission Date: 20170428
  Serious: Yes (Hospitalization, Other)
  Sender: FDA-Public Use
  Company Number: US-ALEXION PHARMACEUTICALS INC.-A201701579

PATIENT
  Age: 35 Year
  Sex: Female

DRUGS (1)
  1. SOLIRIS [Suspect]
     Active Substance: ECULIZUMAB
     Indication: HAEMOLYTIC URAEMIC SYNDROME
     Dosage: 1200 MG, Q2W
     Route: 042
     Dates: start: 20131010

REACTIONS (12)
  - Electrocardiogram QT prolonged [Not Recovered/Not Resolved]
  - Troponin increased [Recovered/Resolved]
  - Pulmonary oedema [Not Recovered/Not Resolved]
  - Blood calcium increased [Unknown]
  - Fatigue [Unknown]
  - Lung disorder [Not Recovered/Not Resolved]
  - Acidosis [Not Recovered/Not Resolved]
  - Dyspnoea [Not Recovered/Not Resolved]
  - Ocular icterus [Unknown]
  - Hypocalcaemia [Not Recovered/Not Resolved]
  - Influenza [Not Recovered/Not Resolved]
  - Vomiting [Unknown]

NARRATIVE: CASE EVENT DATE: 20170217
